FAERS Safety Report 6629599-1 (Version None)
Quarter: 2010Q1

REPORT INFORMATION
  Report Type: 
  Country: None (occurrence: None)
  Receive Date: 20100310
  Receipt Date: 20100310
  Transmission Date: 20100710
  Serious: Yes (Life-Threatening, Hospitalization, Disabling, Other)
  Sender: FDA-Public Use
  Company Number: None

PATIENT
  Age: 77 Year
  Sex: Female
  Weight: 58.9676 kg

DRUGS (4)
  1. LITHIUM CARBONATE [Suspect]
     Indication: BIPOLAR DISORDER
     Dosage: 300 M.G. 2 A DAY FEB - JULY
  2. ZOLOFT [Suspect]
  3. TEGRETOL [Suspect]
  4. CYMBALTA [Suspect]

REACTIONS (18)
  - BALANCE DISORDER [None]
  - CHEST PAIN [None]
  - CHILLS [None]
  - DRUG TOXICITY [None]
  - DYSKINESIA [None]
  - HALLUCINATION, VISUAL [None]
  - HYPERAESTHESIA [None]
  - HYPERSENSITIVITY [None]
  - HYPERTENSION [None]
  - LOSS OF CONTROL OF LEGS [None]
  - MOBILITY DECREASED [None]
  - MUSCLE SPASMS [None]
  - NERVOUSNESS [None]
  - NONSPECIFIC REACTION [None]
  - RENAL FAILURE [None]
  - SELF-INJURIOUS IDEATION [None]
  - STRESS [None]
  - URINARY TRACT INFECTION [None]
